FAERS Safety Report 7278242-X (Version None)
Quarter: 2010Q4

REPORT INFORMATION
  Report Type: 
  Country: None (occurrence: None)
  Receive Date: 20101206
  Receipt Date: 20101020
  Transmission Date: 20110411
  Serious: No
  Sender: FDA-Public Use
  Company Number: 2010SP056159

PATIENT
  Age: 49 Year
  Sex: Female

DRUGS (11)
  1. SAPHRIS [Suspect]
     Indication: AGITATION
     Dosage: 10 MG;ONCE;SL
     Route: 060
     Dates: start: 20101012, end: 20101012
  2. SAPHRIS [Suspect]
     Indication: BIPOLAR DISORDER
     Dosage: 10 MG;ONCE;SL
     Route: 060
     Dates: start: 20101012, end: 20101012
  3. LAMOTRIGINE [Concomitant]
  4. TOPAMAX [Concomitant]
  5. PAROXETINE [Concomitant]
  6. TRAZODONE [Concomitant]
  7. CLONAZEPAM [Concomitant]
  8. PHENTERMINE [Concomitant]
  9. BUPROPION SR [Concomitant]
  10. GEODON [Concomitant]
  11. SONATA [Concomitant]

REACTIONS (3)
  - ORAL DISCOMFORT [None]
  - PAIN [None]
  - STOMATITIS [None]
